FAERS Safety Report 12211768 (Version 1)
Quarter: 2016Q1

REPORT INFORMATION
  Report Type: Spontaneous
  Country: CN (occurrence: CN)
  Receive Date: 20160325
  Receipt Date: 20160325
  Transmission Date: 20160526
  Serious: Yes (Hospitalization)
  Sender: FDA-Public Use
  Company Number: CN-ELI_LILLY_AND_COMPANY-CN201603008206

PATIENT
  Age: 88 Year
  Sex: Male
  Weight: 60 kg

DRUGS (3)
  1. GLUCOBAY [Concomitant]
     Active Substance: ACARBOSE
  2. HUMULIN R [Suspect]
     Active Substance: INSULIN HUMAN
     Indication: DIABETES MELLITUS
     Dosage: 28 U, EACH MORNING
     Route: 058
  3. HUMULIN R [Suspect]
     Active Substance: INSULIN HUMAN
     Dosage: 24 U, EACH EVENING
     Route: 058

REACTIONS (1)
  - Body temperature increased [Unknown]

NARRATIVE: CASE EVENT DATE: 20160315
